FAERS Safety Report 7557128-7 (Version None)
Quarter: 2011Q2

REPORT INFORMATION
  Report Type: 
  Country: None (occurrence: None)
  Receive Date: 20110620
  Receipt Date: 20110608
  Transmission Date: 20111010
  Serious: Yes (Hospitalization, Other)
  Sender: FDA-Public Use
  Company Number: US-ROCHE-735920

PATIENT
  Sex: Male
  Weight: 77.1 kg

DRUGS (1)
  1. ACCUTANE [Suspect]
     Indication: ACNE
     Route: 065
     Dates: start: 19920501, end: 19930602

REACTIONS (7)
  - DEPRESSION [None]
  - BIPOLAR DISORDER [None]
  - ABDOMINAL PAIN [None]
  - ALCOHOLISM [None]
  - RECTAL HAEMORRHAGE [None]
  - COLITIS ULCERATIVE [None]
  - NAUSEA [None]
